FAERS Safety Report 5315217-1 (Version None)
Quarter: 2007Q2

REPORT INFORMATION
  Report Type: 
  Country: None (occurrence: None)
  Receive Date: 20070502
  Receipt Date: 20070425
  Transmission Date: 20071010
  Serious: Yes (Hospitalization)
  Sender: FDA-Public Use
  Company Number: US-MERCK-0703USA01516

PATIENT
  Age: 48 Year
  Sex: Female
  Weight: 153 kg

DRUGS (13)
  1. JANUVIA [Suspect]
     Indication: DIABETES MELLITUS
     Route: 048
     Dates: start: 20070208, end: 20070213
  2. METFORMIN [Concomitant]
     Route: 048
  3. LASIX [Concomitant]
     Route: 048
     Dates: end: 20070211
  4. LASIX [Concomitant]
     Route: 048
     Dates: start: 20070211
  5. TRILEPTAL [Concomitant]
     Route: 048
  6. HYDRALAZINE [Concomitant]
     Route: 048
  7. XANAX [Concomitant]
     Route: 048
  8. ASPIRIN [Concomitant]
     Route: 048
  9. DIOVAN [Concomitant]
     Route: 048
  10. MAGNESIUM (UNSPECIFIED) [Concomitant]
     Route: 048
  11. POTASSIUM (UNSPECIFIED) [Concomitant]
     Route: 048
  12. GLIPIZIDE [Concomitant]
     Route: 048
  13. ISOSORBIDE [Concomitant]
     Route: 065

REACTIONS (1)
  - CARDIAC FAILURE CONGESTIVE [None]
